FAERS Safety Report 12898900 (Version 1)
Quarter: 2016Q4

REPORT INFORMATION
  Report Type: Spontaneous
  Country: AU (occurrence: AU)
  Receive Date: 20161101
  Receipt Date: 20161101
  Transmission Date: 20170207
  Serious: Yes (Other)
  Sender: FDA-Public Use
  Company Number: AU-SHIRE-AU201615439

PATIENT
  Age: 7 Year
  Sex: Female

DRUGS (1)
  1. VYVANSE [Suspect]
     Active Substance: LISDEXAMFETAMINE DIMESYLATE
     Indication: ATTENTION DEFICIT/HYPERACTIVITY DISORDER
     Dosage: 30 MG, 1X/DAY:QD
     Route: 048
     Dates: start: 20161008, end: 20161016

REACTIONS (7)
  - Vomiting [Unknown]
  - Paranoia [Unknown]
  - Psychotic disorder [Unknown]
  - Hyperacusis [Unknown]
  - Diarrhoea [Unknown]
  - Screaming [Unknown]
  - Crying [Unknown]

NARRATIVE: CASE EVENT DATE: 20161016
